FAERS Safety Report 9636018 (Version 1)
Quarter: 2013Q4

REPORT INFORMATION
  Report Type: Spontaneous
  Country: US (occurrence: US)
  Receive Date: 20131021
  Receipt Date: 20131021
  Transmission Date: 20140711
  Serious: Yes (Death, Hospitalization)
  Sender: FDA-Public Use
  Company Number: US-ACTAVIS-2013-18222

PATIENT
  Age: 63 Year
  Sex: Female
  Weight: 113 kg

DRUGS (4)
  1. CLINDAMYCIN HYDROCHLORIDE (WATSON LABORATORIES) [Suspect]
     Indication: WOUND INFECTION STAPHYLOCOCCAL
     Dosage: UNK
     Route: 048
  2. LEVOTHYROXINE [Concomitant]
     Indication: PRODUCT USED FOR UNKNOWN INDICATION
     Dosage: UNK
     Route: 065
  3. ATORVASTATIN [Concomitant]
     Indication: PRODUCT USED FOR UNKNOWN INDICATION
     Dosage: UNK
     Route: 065
  4. ACETAMINOPHEN W/HYDROCODONE [Concomitant]
     Indication: PRODUCT USED FOR UNKNOWN INDICATION
     Dosage: UNK
     Route: 065

REACTIONS (2)
  - Drug reaction with eosinophilia and systemic symptoms [Fatal]
  - Multi-organ failure [Fatal]
